FAERS Safety Report 4376948-3 (Version None)
Quarter: 2004Q2

REPORT INFORMATION
  Report Type: 
  Country: None (occurrence: None)
  Receive Date: 20040608
  Receipt Date: 20040526
  Transmission Date: 20050107
  Serious: Yes (Hospitalization, Congenital Anomaly, Other)
  Sender: FDA-Public Use
  Company Number: 2004035381

PATIENT
  Sex: Male

DRUGS (3)
  1. FLUCONAZOLE [Suspect]
     Indication: ILL-DEFINED DISORDER
     Dosage: ORAL
     Route: 048
     Dates: start: 20030101, end: 20030101
  2. ALL OTHER THERAPEUTIC PRODUCTS [Concomitant]
  3. MAGNESIUM [Concomitant]

REACTIONS (4)
  - BLADDER DISORDER [None]
  - KIDNEY MALFORMATION [None]
  - MATERNAL DRUGS AFFECTING FOETUS [None]
  - URETHRAL MEATUS STENOSIS [None]
